FAERS Safety Report 5903197-7 (Version None)
Quarter: 2008Q3

REPORT INFORMATION
  Report Type: 
  Country: None (occurrence: None)
  Receive Date: 20080929
  Receipt Date: 20080929
  Transmission Date: 20090109
  Serious: Yes (Hospitalization)
  Sender: FDA-Public Use
  Company Number: None

PATIENT
  Sex: Male
  Weight: 90.3 kg

DRUGS (5)
  1. DASATINIB - BMS [Suspect]
     Indication: GLIOBLASTOMA
     Dosage: 180MG DAYS 1-26 PO DAILY
     Route: 048
     Dates: start: 20080911
  2. ERLOTINIB GENENTECH [Suspect]
     Indication: GLIOBLASTOMA
     Dosage: 150MG DAYS 1-28 PO DAILY
     Route: 048
     Dates: start: 20080911
  3. DEXAMETHASONE [Concomitant]
  4. GLYBURIDE [Concomitant]
  5. METFORMIN [Concomitant]

REACTIONS (6)
  - HEADACHE [None]
  - HEMIPARESIS [None]
  - LETHARGY [None]
  - MENTAL STATUS CHANGES [None]
  - NAUSEA [None]
  - VOMITING [None]
